FAERS Safety Report 5385813-4 (Version None)
Quarter: 2007Q3

REPORT INFORMATION
  Report Type: 
  Country: None (occurrence: None)
  Receive Date: 20070712
  Receipt Date: 20070703
  Transmission Date: 20080115
  Serious: Yes (Hospitalization)
  Sender: FDA-Public Use
  Company Number: US-ELI_LILLY_AND_COMPANY-US200707001310

PATIENT
  Age: 55 Year
  Sex: Female
  Weight: 77.097 kg

DRUGS (8)
  1. BYETTA [Suspect]
     Indication: TYPE 2 DIABETES MELLITUS
     Dosage: 5 MG, 2/D
     Route: 058
     Dates: start: 20061101, end: 20070101
  2. BYETTA [Suspect]
     Dosage: 10 UG, 2/D
     Route: 058
     Dates: start: 20070101, end: 20070101
  3. BYETTA [Suspect]
     Dosage: 5 UG, 2/D
     Route: 058
     Dates: start: 20070101
  4. ZOCOR [Concomitant]
     Indication: BLOOD PRESSURE
  5. LISINOPRIL [Concomitant]
  6. ZETIA [Concomitant]
  7. SYNTHROID [Concomitant]
  8. METFORMIN HCL [Concomitant]

REACTIONS (3)
  - HYPOAESTHESIA [None]
  - NAUSEA [None]
  - WEIGHT DECREASED [None]
